FAERS Safety Report 16058146 (Version 1)
Quarter: 2019Q1

REPORT INFORMATION
  Report Type: Spontaneous
  Country: US (occurrence: US)
  Receive Date: 20190311
  Receipt Date: 20190311
  Transmission Date: 20190418
  Serious: No
  Sender: FDA-Public Use
  Company Number: US-HERITAGE PHARMACEUTICALS-2019HTG00054

PATIENT
  Sex: Male
  Weight: 79.37 kg

DRUGS (10)
  1. FINASTERIDE. [Concomitant]
     Active Substance: FINASTERIDE
  2. OMEPRAZOLE. [Concomitant]
     Active Substance: OMEPRAZOLE
  3. BUPROPION. [Concomitant]
     Active Substance: BUPROPION
  4. LIPITOR [Concomitant]
     Active Substance: ATORVASTATIN CALCIUM
  5. LUTEIN [Concomitant]
     Active Substance: LUTEIN
  6. TAMSULOSIN [Concomitant]
     Active Substance: TAMSULOSIN
  7. DIFLUNISAL. [Suspect]
     Active Substance: DIFLUNISAL
     Indication: ARTHRITIS
     Dosage: 500 MG, 2X/DAY
     Route: 048
  8. MYRBETRIQ [Concomitant]
     Active Substance: MIRABEGRON
  9. DILTIAZEM. [Concomitant]
     Active Substance: DILTIAZEM
  10. HCTZ [Concomitant]
     Active Substance: HYDROCHLOROTHIAZIDE

REACTIONS (1)
  - Blood pressure increased [Not Recovered/Not Resolved]
